FAERS Safety Report 5787088-0 (Version None)
Quarter: 2008Q2

REPORT INFORMATION
  Report Type: 
  Country: None (occurrence: None)
  Receive Date: 20080625
  Receipt Date: 20080619
  Transmission Date: 20081010
  Serious: Yes (Other)
  Sender: FDA-Public Use
  Company Number: JP-BRISTOL-MYERS SQUIBB COMPANY-14027403

PATIENT
  Age: 9 Year
  Sex: Female

DRUGS (6)
  1. ENDOXAN [Suspect]
     Indication: DESMOPLASTIC SMALL ROUND CELL TUMOUR
     Route: 065
  2. CISPLATIN [Suspect]
     Indication: DESMOPLASTIC SMALL ROUND CELL TUMOUR
     Route: 065
  3. VINCRISTINE SULFATE [Suspect]
     Indication: DESMOPLASTIC SMALL ROUND CELL TUMOUR
     Route: 065
  4. PIRARUBICIN HCL [Suspect]
     Indication: DESMOPLASTIC SMALL ROUND CELL TUMOUR
     Route: 065
  5. ADRIAMYCIN PFS [Suspect]
     Indication: DESMOPLASTIC SMALL ROUND CELL TUMOUR
  6. RADIOTHERAPY [Suspect]

REACTIONS (3)
  - LEUKAEMIA [None]
  - MYELODYSPLASTIC SYNDROME [None]
  - VENOOCCLUSIVE LIVER DISEASE [None]
